FAERS Safety Report 16639556 (Version 2)
Quarter: 2019Q4

REPORT INFORMATION
  Report Type: Spontaneous
  Country: JP (occurrence: JP)
  Receive Date: 20190726
  Receipt Date: 20191002
  Transmission Date: 20200122
  Serious: Yes (Other)
  Sender: FDA-Public Use
  Company Number: PHHY2019JP170713

PATIENT
  Age: 76 Year
  Sex: Male

DRUGS (1)
  1. NILOTINIB [Suspect]
     Active Substance: NILOTINIB
     Indication: CHRONIC MYELOID LEUKAEMIA
     Dosage: 800 MG, UNK
     Route: 048

REACTIONS (7)
  - Carotid artery stenosis [Unknown]
  - Cerebral infarction [Unknown]
  - Hemiparesis [Unknown]
  - Dysaesthesia [Unknown]
  - Facial paralysis [Recovering/Resolving]
  - Hypoaesthesia [Unknown]
  - Quadriparesis [Unknown]

NARRATIVE: CASE EVENT DATE: 201703
